FAERS Safety Report 9110023 (Version 1)
Quarter: 2013Q1

REPORT INFORMATION
  Report Type: Spontaneous
  Country: US (occurrence: US)
  Receive Date: 20130222
  Receipt Date: 20130222
  Transmission Date: 20140127
  Serious: Yes (Hospitalization)
  Sender: FDA-Public Use
  Company Number: US-BAYER-2013-020735

PATIENT
  Age: 87 Year
  Sex: Male

DRUGS (6)
  1. AMLODIPINE [Suspect]
     Dosage: 10 MG, QD
     Route: 048
  2. DIPHENHYDRAMINE HYDROCHLORIDE [Suspect]
     Indication: INSOMNIA
     Dosage: 25 MG, PRN, AT BEDTIME (ONCE OR TWICE PER WEEK)
     Route: 048
  3. KAVA [Suspect]
     Indication: INSOMNIA
     Dosage: 1 DF, UNK AT BEDTIME
     Route: 048
  4. LEVOTHYROXINE [Concomitant]
     Dosage: DAILY DOSE 125 ?G
     Route: 048
  5. TAMSULOSIN [Concomitant]
     Dosage: 0.4 MG, QD
     Route: 048
  6. IBUPROFEN [Concomitant]
     Indication: PAIN
     Dosage: 400 MG, PRN
     Route: 048

REACTIONS (6)
  - Mental status changes [None]
  - Confusional state [Recovered/Resolved]
  - Delirium [Recovered/Resolved]
  - Urinary tract infection [None]
  - Liver disorder [None]
  - Hepatic encephalopathy [None]
